FAERS Safety Report 5287642-9 (Version None)
Quarter: 2007Q1

REPORT INFORMATION
  Report Type: 
  Country: None (occurrence: None)
  Receive Date: 20070105
  Receipt Date: 20061003
  Transmission Date: 20070707
  Serious: Yes (Other)
  Sender: FDA-Public Use
  Company Number: US-JNJFOC-20061001109

PATIENT
  Age: 23 Year
  Sex: Male
  Weight: 73.0291 kg

DRUGS (4)
  1. ULTRAM ER [Suspect]
     Indication: BACK PAIN
     Dosage: 100 MG, 3 IN 1 DAY, ORAL
     Route: 048
     Dates: start: 20060425, end: 20060918
  2. ULTRAM [Suspect]
     Indication: BACK PAIN
     Dosage: 50 MG, 4 IN 1 DAY, ORAL
     Route: 048
     Dates: start: 20041125
  3. ALBUTEROL [Concomitant]
  4. ASACOL [Concomitant]

REACTIONS (1)
  - CONVULSION [None]
